FAERS Safety Report 20504850 (Version 1)
Quarter: 2022Q1

REPORT INFORMATION
  Report Type: Spontaneous
  Country: IT (occurrence: IT)
  Receive Date: 20220223
  Receipt Date: 20220223
  Transmission Date: 20220423
  Serious: Yes (Other)
  Sender: FDA-Public Use
  Company Number: IT-VIIV HEALTHCARE ULC-IT2022EME019961

PATIENT
  Age: 74 Year
  Sex: Male

DRUGS (3)
  1. ISENTRESS [Suspect]
     Active Substance: RALTEGRAVIR POTASSIUM
     Dosage: UNK
  2. INTELENCE [Suspect]
     Active Substance: ETRAVIRINE
     Indication: Product used for unknown indication
     Dosage: UNK
  3. JULUCA [Suspect]
     Active Substance: DOLUTEGRAVIR SODIUM\RILPIVIRINE HYDROCHLORIDE
     Indication: Product used for unknown indication
     Dosage: UNK
     Dates: start: 202105

REACTIONS (5)
  - Diabetes mellitus [Unknown]
  - Aortic valve replacement [Unknown]
  - Atrial fibrillation [Unknown]
  - Vascular graft [Unknown]
  - Chronic kidney disease [Unknown]

NARRATIVE: CASE EVENT DATE: 20210701
